FAERS Safety Report 10547722 (Version 1)
Quarter: 2014Q4

REPORT INFORMATION
  Report Type: Spontaneous
  Country: US (occurrence: None)
  Receive Date: 20141024
  Receipt Date: 20141024
  Transmission Date: 20150529
  Serious: Yes (Hospitalization)
  Sender: FDA-Public Use
  Company Number: None

PATIENT
  Age: 64 Year
  Sex: Male
  Weight: 138.9 kg

DRUGS (2)
  1. ROSUVASTATIN [Suspect]
     Active Substance: ROSUVASTATIN
     Indication: HYPERLIPIDAEMIA
     Route: 048
     Dates: start: 20101119, end: 20110402
  2. ROSUVASTATIN [Suspect]
     Active Substance: ROSUVASTATIN
     Indication: HYPERTENSION
     Route: 048
     Dates: start: 20101119, end: 20110402

REACTIONS (7)
  - Fall [None]
  - Confusional state [None]
  - Dizziness [None]
  - Asthenia [None]
  - Metabolic acidosis [None]
  - Acute kidney injury [None]
  - Myalgia [None]

NARRATIVE: CASE EVENT DATE: 20110402
